FAERS Safety Report 16903646 (Version 3)
Quarter: 2019Q4

REPORT INFORMATION
  Report Type: Spontaneous
  Country: US (occurrence: US)
  Receive Date: 20191010
  Receipt Date: 20191218
  Transmission Date: 20200122
  Serious: Yes (Hospitalization, Other)
  Sender: FDA-Public Use
  Company Number: US-PFIZER INC-2019434803

PATIENT
  Age: 60 Year
  Sex: Female

DRUGS (3)
  1. XELJANZ XR [Suspect]
     Active Substance: TOFACITINIB CITRATE
     Indication: POLYARTHRITIS
     Dosage: 11 MG, 1X/DAY
     Dates: start: 20190811
  2. XELJANZ XR [Suspect]
     Active Substance: TOFACITINIB CITRATE
     Dosage: 11 MG, 1X/DAY
     Dates: start: 20190910
  3. XELJANZ XR [Suspect]
     Active Substance: TOFACITINIB CITRATE
     Dosage: 11 MG, UNK
     Dates: start: 20190909

REACTIONS (14)
  - Peripheral swelling [Unknown]
  - Gait disturbance [Unknown]
  - Lipase increased [Unknown]
  - Product use in unapproved indication [Unknown]
  - Groin pain [Unknown]
  - Anorectal disorder [Unknown]
  - Haematochezia [Recovered/Resolved]
  - Hypotension [Unknown]
  - Pain in extremity [Unknown]
  - Diarrhoea [Unknown]
  - Off label use [Unknown]
  - Blood pressure increased [Recovered/Resolved]
  - Hepatic steatosis [Unknown]
  - Hypoaesthesia [Recovered/Resolved]
